FAERS Safety Report 26186792 (Version 1)
Quarter: 2025Q4

REPORT INFORMATION
  Report Type: Spontaneous
  Country: US (occurrence: US)
  Receive Date: 20251222
  Receipt Date: 20251222
  Transmission Date: 20260118
  Serious: No
  Sender: BAYER HEALTHCARE PHARMACEUTICALS INC.
  Company Number: US-BAYER-2025A166992

PATIENT
  Sex: Male

DRUGS (2)
  1. NUBEQA [Suspect]
     Active Substance: DAROLUTAMIDE
     Dosage: UNK
  2. NUBEQA [Suspect]
     Active Substance: DAROLUTAMIDE
     Dosage: REDUCED IN HALF

REACTIONS (1)
  - Liver function test increased [Recovering/Resolving]
